FAERS Safety Report 5332395-9 (Version None)
Quarter: 2007Q2

REPORT INFORMATION
  Report Type: 
  Country: None (occurrence: None)
  Receive Date: 20070523
  Receipt Date: 20070511
  Transmission Date: 20071010
  Serious: Yes (Hospitalization)
  Sender: FDA-Public Use
  Company Number: SE-PFIZER INC-2007038666

PATIENT
  Sex: Female

DRUGS (3)
  1. SALAZOPYRINE [Suspect]
     Indication: ANKYLOSING SPONDYLITIS
     Dosage: DAILY DOSE:3GRAM
     Route: 048
     Dates: start: 20060801, end: 20070124
  2. ETORICOXIB [Suspect]
     Route: 048
     Dates: start: 20070101, end: 20070124
  3. AMITRIPTYLINE HCL [Concomitant]

REACTIONS (1)
  - PSYCHOTIC DISORDER [None]
